FAERS Safety Report 16403575 (Version 1)
Quarter: 2019Q3

REPORT INFORMATION
  Report Type: Spontaneous
  Country: US (occurrence: US)
  Receive Date: 20190606
  Receipt Date: 20190606
  Transmission Date: 20191004
  Serious: Yes (Disabling)
  Sender: FDA-Public Use
  Company Number: None

PATIENT
  Age: 31 Year
  Sex: Male
  Weight: 72 kg

DRUGS (1)
  1. ACCUTANE [Suspect]
     Active Substance: ISOTRETINOIN
     Indication: ACNE
     Route: 048
     Dates: start: 20070101, end: 20070601

REACTIONS (16)
  - Pain [None]
  - Fatigue [None]
  - Suicidal ideation [None]
  - Social avoidant behaviour [None]
  - General physical health deterioration [None]
  - Skin exfoliation [None]
  - Delusion [None]
  - Depression [None]
  - Panic reaction [None]
  - Loss of employment [None]
  - Body dysmorphic disorder [None]
  - Dry skin [None]
  - Anxiety [None]
  - Arthralgia [None]
  - Back pain [None]
  - Asthenia [None]

NARRATIVE: CASE EVENT DATE: 20070501
